FAERS Safety Report 9278004 (Version 1)
Quarter: 2013Q2

REPORT INFORMATION
  Report Type: Spontaneous
  Country: SE (occurrence: SE)
  Receive Date: 20130508
  Receipt Date: 20130508
  Transmission Date: 20140414
  Serious: Yes (Other)
  Sender: FDA-Public Use
  Company Number: SE-PFIZER INC-2013140753

PATIENT
  Age: 46 Year
  Sex: Female

DRUGS (1)
  1. CELEBRA [Suspect]
     Indication: DRUG LEVEL
     Dosage: UNK
     Dates: start: 20130213, end: 20130213

REACTIONS (5)
  - Fatigue [Unknown]
  - Palpitations [Unknown]
  - Flushing [Unknown]
  - Throat irritation [Unknown]
  - Chest pain [Unknown]
